FAERS Safety Report 15004395 (Version 1)
Quarter: 2018Q2

REPORT INFORMATION
  Report Type: Spontaneous
  Country: US (occurrence: US)
  Receive Date: 20180613
  Receipt Date: 20180613
  Transmission Date: 20180711
  Serious: No
  Sender: FDA-Public Use
  Company Number: US-PFIZER INC-2018239838

PATIENT
  Age: 62 Year
  Sex: Female

DRUGS (3)
  1. GLUTEN [Suspect]
     Active Substance: WHEAT GLUTEN
     Dosage: UNK
  2. LACTOSE [Suspect]
     Active Substance: LACTOSE
     Dosage: UNK
  3. MANNITOL. [Suspect]
     Active Substance: MANNITOL
     Dosage: UNK

REACTIONS (1)
  - Reaction to excipient [Unknown]
